FAERS Safety Report 9831158 (Version 3)
Quarter: 2014Q2

REPORT INFORMATION
  Report Type: Report from Study
  Country: CA (occurrence: CA)
  Receive Date: 20140121
  Receipt Date: 20140618
  Transmission Date: 20141212
  Serious: Yes (Hospitalization, Other)
  Sender: FDA-Public Use
  Company Number: CA-ROCHE-1208272

PATIENT
  Age: 50 Year
  Sex: Female
  Weight: 61.2 kg

DRUGS (11)
  1. RITUXAN [Suspect]
     Indication: RHEUMATOID ARTHRITIS
     Dosage: LAST DOSE TAKEN ON 20/FEB/2014
     Route: 042
     Dates: start: 20120528
  2. RITUXAN [Suspect]
     Route: 042
     Dates: start: 20130430
  3. ENBREL [Suspect]
     Indication: RHEUMATOID ARTHRITIS
     Route: 065
  4. METHOTREXATE [Concomitant]
  5. FOLIC ACID [Concomitant]
  6. PREDNISONE [Concomitant]
  7. TYLENOL [Concomitant]
  8. OMEPRAZOLE [Concomitant]
  9. DIPHENHYDRAMINE HCL [Concomitant]
     Route: 048
     Dates: start: 20130430
  10. ACETAMINOPHEN [Concomitant]
     Route: 048
     Dates: start: 20130430
  11. METHYLPREDNISOLONE [Concomitant]
     Route: 042
     Dates: start: 20130430

REACTIONS (10)
  - Headache [Unknown]
  - Cerebral haemorrhage [Unknown]
  - Cerebral vasoconstriction [Unknown]
  - Hepatic enzyme increased [Unknown]
  - White blood cell count decreased [Unknown]
  - Fatigue [Unknown]
  - Fatigue [Not Recovered/Not Resolved]
  - Arthralgia [Unknown]
  - Weight increased [Unknown]
  - Blood cholesterol increased [Recovering/Resolving]
